FAERS Safety Report 5558105-8 (Version None)
Quarter: 2007Q4

REPORT INFORMATION
  Report Type: 
  Country: None (occurrence: None)
  Receive Date: 20071214
  Receipt Date: 20071206
  Transmission Date: 20080405
  Serious: Yes (Other)
  Sender: FDA-Public Use
  Company Number: JP-ASTRAZENECA-2007AP07847

PATIENT
  Age: 74 Year
  Sex: Male

DRUGS (5)
  1. CASODEX [Suspect]
     Indication: PROSTATE CANCER
     Route: 048
     Dates: start: 20070614, end: 20071101
  2. DOXAZOSIN MESYLATE [Concomitant]
     Route: 048
     Dates: end: 20071101
  3. CAPTOPRIL [Concomitant]
     Route: 048
     Dates: end: 20071101
  4. ZYLORIC [Concomitant]
     Route: 048
     Dates: end: 20071101
  5. RADIATION THERAPY [Concomitant]
     Dates: start: 20070614

REACTIONS (1)
  - PLATELET COUNT DECREASED [None]
